FAERS Safety Report 5828028-5 (Version None)
Quarter: 2008Q3

REPORT INFORMATION
  Report Type: 
  Country: None (occurrence: None)
  Receive Date: 20080730
  Receipt Date: 20070713
  Transmission Date: 20090109
  Serious: No
  Sender: FDA-Public Use
  Company Number: A0664877A

PATIENT
  Sex: Female

DRUGS (1)
  1. RANITIDINE HCL [Suspect]
     Indication: DRUG USE FOR UNKNOWN INDICATION
     Route: 065

REACTIONS (2)
  - FATIGUE [None]
  - NAUSEA [None]
